FAERS Safety Report 4581353-0 (Version None)
Quarter: 2005Q1

REPORT INFORMATION
  Report Type: 
  Country: None (occurrence: None)
  Receive Date: 20050214
  Receipt Date: 20041005
  Transmission Date: 20050727
  Serious: Yes (Hospitalization)
  Sender: FDA-Public Use
  Company Number: US-GLAXOSMITHKLINE-A0528509A

PATIENT
  Age: 50 Year
  Sex: Male

DRUGS (9)
  1. LAMICTAL [Suspect]
     Route: 048
     Dates: start: 20040908, end: 20041003
  2. VITAMIN C [Concomitant]
  3. CALCIUM GLUCONATE [Concomitant]
  4. LEXAPRO [Concomitant]
  5. MULTI-VITAMIN [Concomitant]
  6. IRON [Concomitant]
  7. PROTONIX [Concomitant]
  8. TYLENOL [Concomitant]
  9. XANAX [Concomitant]

REACTIONS (4)
  - ABDOMINAL PAIN [None]
  - CHEST PAIN [None]
  - GASTROINTESTINAL HAEMORRHAGE [None]
  - NAUSEA [None]
